FAERS Safety Report 5794059-7 (Version None)
Quarter: 2008Q2

REPORT INFORMATION
  Report Type: 
  Country: None (occurrence: None)
  Receive Date: 20080627
  Receipt Date: 20080507
  Transmission Date: 20081010
  Serious: Yes (Hospitalization)
  Sender: FDA-Public Use
  Company Number: ES-PFIZER INC-2008041044

PATIENT
  Age: 80 Year
  Sex: Male

DRUGS (6)
  1. NEURONTIN [Suspect]
     Route: 048
  2. ARICEPT [Interacting]
     Route: 048
  3. MEMANTINE HCL [Interacting]
     Indication: DEMENTIA
     Route: 048
     Dates: start: 20071201, end: 20080106
  4. AMLODIPINE [Concomitant]
     Indication: HYPERTENSION
     Route: 048
  5. PREDNISONE [Concomitant]
     Route: 048
  6. TROMALYT [Concomitant]
     Indication: TRANSIENT ISCHAEMIC ATTACK
     Route: 048

REACTIONS (2)
  - CONFUSIONAL STATE [None]
  - DRUG INTERACTION [None]
